FAERS Safety Report 9565458 (Version 2)
Quarter: 2013Q4

REPORT INFORMATION
  Report Type: Other
  Country: AR (occurrence: AR)
  Receive Date: 20130930
  Receipt Date: 20131007
  Transmission Date: 20140711
  Serious: Yes (Other)
  Sender: FDA-Public Use
  Company Number: AR-US-EMD SERONO, INC.-7239792

PATIENT
  Sex: Female

DRUGS (2)
  1. CLOMIPHENE CITRATE [Suspect]
     Indication: OVULATION INDUCTION
  2. CHORIOGONADOTROPIN ALFA [Suspect]
     Indication: OVULATION INDUCTION

REACTIONS (1)
  - Abortion spontaneous [Unknown]
